FAERS Safety Report 8986625 (Version 1)
Quarter: 2012Q4

REPORT INFORMATION
  Report Type: 
  Country: US (occurrence: US)
  Receive Date: 20121226
  Receipt Date: 20121226
  Transmission Date: 20130627
  Serious: Yes (Death, Other)
  Sender: FDA-Public Use
  Company Number: US-ASTRAZENECA-2012SE94510

PATIENT
  Sex: Male

DRUGS (3)
  1. BRILINTA [Suspect]
     Indication: STENT PLACEMENT
     Route: 048
     Dates: start: 20121213, end: 20121216
  2. ASPIRIN [Concomitant]
  3. XARELTO [Concomitant]
     Indication: ATRIAL FIBRILLATION

REACTIONS (2)
  - Death [Fatal]
  - Haematoma [Unknown]
